FAERS Safety Report 23481821 (Version 1)
Quarter: 2024Q1

REPORT INFORMATION
  Report Type: Spontaneous
  Country: US (occurrence: None)
  Receive Date: 20240205
  Receipt Date: 20240205
  Transmission Date: 20240410
  Serious: Yes (Hospitalization)
  Sender: FDA-Public Use
  Company Number: None

PATIENT
  Sex: Male

DRUGS (1)
  1. DESCOVY [Suspect]
     Active Substance: EMTRICITABINE\TENOFOVIR ALAFENAMIDE FUMARATE
     Indication: Exposure to communicable disease
     Dosage: OTHER QUANTITY : 200MG/25MG;?FREQUENCY : DAILY;?
     Route: 048
     Dates: start: 202302

REACTIONS (1)
  - Hospitalisation [None]
